FAERS Safety Report 16897626 (Version 1)
Quarter: 2019Q4

REPORT INFORMATION
  Report Type: Spontaneous
  Country: US (occurrence: US)
  Receive Date: 20191009
  Receipt Date: 20191009
  Transmission Date: 20200122
  Serious: Yes (Hospitalization)
  Sender: FDA-Public Use
  Company Number: US-ROCHE-2420906

PATIENT
  Age: 30 Year
  Sex: Female

DRUGS (5)
  1. VALIUM [Suspect]
     Active Substance: DIAZEPAM
     Dosage: OVER A PERIOD OF THREE WEEKS SHE STARTED TO INCREASE THE DOSE INDISCRIMINATELY AND WAS TAKING UP TO
     Route: 065
  2. VALIUM [Suspect]
     Active Substance: DIAZEPAM
     Dosage: ON THE 5TH DAY OF TREATMENT OF WITHDRAWAL SYNDROME AND STOPPED ABRUPTLY
     Route: 065
  3. VALIUM [Suspect]
     Active Substance: DIAZEPAM
     Dosage: THEN RAPIDLY INCREASED IT TO 240 MG PER DAY FOR A TWO-WEEK PERIOD
     Route: 065
  4. VALIUM [Suspect]
     Active Substance: DIAZEPAM
     Dosage: PLAN WAS TO DECREASE DIAZEPAM BY 10 MG/DAY
     Route: 065
  5. VALIUM [Suspect]
     Active Substance: DIAZEPAM
     Indication: BACK PAIN
     Route: 065

REACTIONS (6)
  - Drug withdrawal syndrome [Recovered/Resolved]
  - Drug abuse [Unknown]
  - Electrocardiogram abnormal [Recovered/Resolved]
  - Drug dependence [Recovered/Resolved]
  - Haemoglobin decreased [Recovered/Resolved]
  - Intentional overdose [Unknown]
